FAERS Safety Report 12485672 (Version 1)
Quarter: 2016Q2

REPORT INFORMATION
  Report Type: Spontaneous
  Country: None (occurrence: GB)
  Receive Date: 20160621
  Receipt Date: 20160621
  Transmission Date: 20160815
  Serious: Yes (Other)
  Sender: FDA-Public Use
  Company Number: GB-GALDERMA-GB16004010

PATIENT
  Age: 30 Year
  Sex: Female
  Weight: 49 kg

DRUGS (3)
  1. SALICYLIC ACID. [Interacting]
     Active Substance: SALICYLIC ACID
     Indication: ACNE
     Dosage: 2%
     Route: 061
     Dates: start: 2013
  2. DIFFERIN [Suspect]
     Active Substance: ADAPALENE
     Indication: ACNE
     Route: 061
     Dates: start: 201604
  3. NIACINAMIDE [Concomitant]
     Active Substance: NIACINAMIDE
     Dosage: 4%
     Route: 061

REACTIONS (6)
  - Skin exfoliation [Recovering/Resolving]
  - Application site warmth [Recovered/Resolved]
  - Application site erythema [Recovered/Resolved]
  - Application site pruritus [Recovered/Resolved]
  - Angular cheilitis [Recovered/Resolved]
  - Drug interaction [Recovering/Resolving]

NARRATIVE: CASE EVENT DATE: 201604
